FAERS Safety Report 5868526-1 (Version None)
Quarter: 2008Q3

REPORT INFORMATION
  Report Type: 
  Country: None (occurrence: None)
  Receive Date: 20080903
  Receipt Date: 20080828
  Transmission Date: 20090109
  Serious: Yes (Other)
  Sender: FDA-Public Use
  Company Number: GB-ROCHE-567685

PATIENT
  Sex: Female
  Weight: 85.7 kg

DRUGS (8)
  1. ORLISTAT [Suspect]
     Indication: OBESITY
     Route: 048
     Dates: start: 20071128, end: 20071225
  2. ORLISTAT [Suspect]
     Route: 048
     Dates: end: 20080501
  3. SANDRENA [Concomitant]
     Route: 062
     Dates: start: 20030522
  4. CITALOPRAM HYDROBROMIDE [Concomitant]
     Indication: DEPRESSION
     Route: 048
     Dates: start: 20050420
  5. AMITRIPTYLINE HCL [Concomitant]
     Indication: PAIN
     Dosage: 10 MG AT NIGHT
     Route: 048
     Dates: start: 20070207
  6. TRAMADOL HCL [Concomitant]
     Indication: PAIN
     Dosage: DOSAGE 50 MG TAKES 1-2 TABLETS UP TO 4 TIMES PER DAY
     Route: 048
  7. LOPERAMIDE HCL [Concomitant]
     Indication: IRRITABLE BOWEL SYNDROME
     Route: 048
  8. SIMVASTATIN [Concomitant]
     Indication: HYPERLIPIDAEMIA
     Dosage: 10 MG NOCTE
     Route: 048
     Dates: start: 20080521

REACTIONS (2)
  - DIARRHOEA [None]
  - TYPE 2 DIABETES MELLITUS [None]
